FAERS Safety Report 17654705 (Version 1)
Quarter: 2020Q2

REPORT INFORMATION
  Report Type: Spontaneous
  Country: US (occurrence: US)
  Receive Date: 20200410
  Receipt Date: 20200410
  Transmission Date: 20200713
  Serious: Yes (Hospitalization, Other)
  Sender: FDA-Public Use
  Company Number: US-EMCURE PHARMACEUTICALS LTD-2020-EPL-000382

PATIENT
  Age: 20 Month
  Sex: Female
  Weight: 10 kg

DRUGS (12)
  1. RIFAMPIN. [Suspect]
     Active Substance: RIFAMPIN
     Indication: ENDOCARDITIS STAPHYLOCOCCAL
  2. GENTAMICIN. [Concomitant]
     Active Substance: GENTAMICIN
     Indication: ENDOCARDITIS STAPHYLOCOCCAL
  3. HEPARIN [Concomitant]
     Active Substance: HEPARIN SODIUM
     Dosage: UNFRACTIONATED THERAPY
  4. WARFARIN [Interacting]
     Active Substance: WARFARIN
     Indication: ANTICOAGULANT THERAPY
     Dosage: 1 MILLIGRAM/DAY, MAINTENANCE DOSE
  5. WARFARIN [Interacting]
     Active Substance: WARFARIN
     Dosage: 0.75 MILLIGRAM, REINITIATED
  6. AMIODARONE [Concomitant]
     Active Substance: AMIODARONE
     Indication: PULMONARY HYPERTENSION
  7. VANCOMYCIN [Concomitant]
     Active Substance: VANCOMYCIN
     Indication: ENDOCARDITIS STAPHYLOCOCCAL
  8. HEPARIN [Concomitant]
     Active Substance: HEPARIN SODIUM
     Indication: ANTICOAGULANT THERAPY
     Dosage: ON POSTOPERATIVE DAY 2
  9. LANSOPRAZOLE. [Concomitant]
     Active Substance: LANSOPRAZOLE
  10. WARFARIN [Interacting]
     Active Substance: WARFARIN
     Dosage: INCREASED FROM 1 MG/DAY TO 4 MG/DAY
  11. AMIODARONE [Concomitant]
     Active Substance: AMIODARONE
     Indication: JUNCTIONAL ECTOPIC TACHYCARDIA
  12. CEFOTAXIME [Concomitant]
     Active Substance: CEFOTAXIME SODIUM
     Indication: ENDOCARDITIS STAPHYLOCOCCAL

REACTIONS (3)
  - Drug interaction [Unknown]
  - Off label use [Unknown]
  - International normalised ratio decreased [Recovered/Resolved]
